FAERS Safety Report 15053169 (Version 1)
Quarter: 2018Q2

REPORT INFORMATION
  Report Type: Report from Study
  Country: US (occurrence: US)
  Receive Date: 20180622
  Receipt Date: 20180622
  Transmission Date: 20180711
  Serious: Yes (Hospitalization)
  Sender: FDA-Public Use
  Company Number: US-BAYER-2018-114742

PATIENT
  Age: 16 Year
  Sex: Female

DRUGS (3)
  1. STIVARGA [Suspect]
     Active Substance: REGORAFENIB
     Indication: SOFT TISSUE SARCOMA
     Dosage: DAILY DOSE 120 MG X 21 DAYS
     Route: 048
     Dates: start: 2018
  2. STIVARGA [Suspect]
     Active Substance: REGORAFENIB
     Indication: SOFT TISSUE SARCOMA
     Dosage: DAILY DOSE 80 MG X 3 DAYS
     Route: 048
     Dates: start: 2018, end: 2018
  3. STIVARGA [Suspect]
     Active Substance: REGORAFENIB
     Indication: SOFT TISSUE SARCOMA
     Dosage: DAILY DOSE 80 MG X 7 DAYS
     Route: 048
     Dates: start: 201805, end: 2018

REACTIONS (13)
  - Swelling face [None]
  - Skin warm [None]
  - Asthenia [Not Recovered/Not Resolved]
  - Off label use [None]
  - Weight decreased [Not Recovered/Not Resolved]
  - Drug administered to patient of inappropriate age [None]
  - Product use in unapproved indication [None]
  - Pyrexia [None]
  - Thrombosis [None]
  - Nausea [None]
  - Fatigue [Not Recovered/Not Resolved]
  - Decreased appetite [None]
  - Vomiting [None]

NARRATIVE: CASE EVENT DATE: 2018
